FAERS Safety Report 18740896 (Version 1)
Quarter: 2021Q1

REPORT INFORMATION
  Report Type: Spontaneous
  Country: US (occurrence: US)
  Receive Date: 20210114
  Receipt Date: 20210114
  Transmission Date: 20210419
  Serious: Yes (Death, Hospitalization)
  Sender: FDA-Public Use
  Company Number: US-PFIZER INC-2021015233

PATIENT
  Age: 59 Year
  Sex: Female

DRUGS (7)
  1. VITAMINS NOS [Suspect]
     Active Substance: VITAMINS
     Dosage: UNK (INGESTION)
     Route: 048
  2. LORAZEPAM. [Suspect]
     Active Substance: LORAZEPAM
     Dosage: UNK (INGESTION)
     Route: 048
  3. ESZOPICLONE. [Suspect]
     Active Substance: ESZOPICLONE
     Dosage: UNK (INGESTION)
     Route: 048
  4. OLANZAPINE. [Suspect]
     Active Substance: OLANZAPINE
     Dosage: UNK (INGESTION)
     Route: 048
  5. VILAZODONE [Suspect]
     Active Substance: VILAZODONE
     Dosage: UNK (INGESTION)
     Route: 048
  6. TRAZODONE [Suspect]
     Active Substance: TRAZODONE HYDROCHLORIDE
     Dosage: UNK (INGESTION)
     Route: 048
  7. GUANFACINE. [Suspect]
     Active Substance: GUANFACINE
     Dosage: UNK (INGESTION)
     Route: 048

REACTIONS (1)
  - Completed suicide [Fatal]

NARRATIVE: CASE EVENT DATE: 2019
